FAERS Safety Report 7967161-9 (Version None)
Quarter: 2011Q4

REPORT INFORMATION
  Report Type: 
  Country: None (occurrence: None)
  Receive Date: 20111206
  Receipt Date: 20111031
  Transmission Date: 20120403
  Serious: No
  Sender: FDA-Public Use
  Company Number: LTI2011A00190

PATIENT
  Age: 77 Year
  Sex: Male

DRUGS (11)
  1. SINGULAIR [Concomitant]
  2. SOTALOL HCL [Concomitant]
  3. NICARDIPINE HYDROCHLORIDE [Concomitant]
  4. FENOFIBRATE [Concomitant]
  5. BIPERIDYS (DOMPERIDONE) [Concomitant]
  6. PREVISCAN (FLUINDIONE) [Concomitant]
  7. LANSOPRAZOLE [Suspect]
     Indication: HIATUS HERNIA
     Dosage: 30 MG (30 MG,1 IN 1 D) ORAL ; 30 MG (30 MG,1 IN 1 D) ORAL
     Route: 048
     Dates: start: 20110627
  8. LANSOPRAZOLE [Suspect]
     Indication: HIATUS HERNIA
     Dosage: 30 MG (30 MG,1 IN 1 D) ORAL ; 30 MG (30 MG,1 IN 1 D) ORAL
     Route: 048
     Dates: end: 20110101
  9. PERMIXON (SERENOA REPENS) [Concomitant]
  10. SPIRIVA [Concomitant]
  11. LEXOMIL (BROMAZEPAM) [Concomitant]

REACTIONS (1)
  - VISION BLURRED [None]
